FAERS Safety Report 16475077 (Version 1)
Quarter: 2019Q2

REPORT INFORMATION
  Report Type: Report from Study
  Country: ES (occurrence: ES)
  Receive Date: 20190625
  Receipt Date: 20190625
  Transmission Date: 20190711
  Serious: Yes (Other)
  Sender: FDA-Public Use
  Company Number: ES-TEVA-2019-ES-1068267

PATIENT
  Age: 52 Year
  Sex: Male

DRUGS (3)
  1. LINEZOLID (1279A) [Suspect]
     Active Substance: LINEZOLID
     Dosage: 600 MG EVERY 12 HOURS
     Route: 042
     Dates: start: 20190308, end: 20190312
  2. AMOXICILINA/ ACIDO CLAVULANICO [Suspect]
     Active Substance: AMOXICILLIN\CLAVULANIC ACID
     Dosage: 1 GR EVERY 8 HOURS
     Route: 042
     Dates: start: 20190308, end: 20190312
  3. CEFTRIAXONA (501A) [Suspect]
     Active Substance: CEFTRIAXONE
     Dosage: 2 GR DIA
     Route: 042
     Dates: start: 20190308, end: 20190312

REACTIONS (1)
  - Hepatitis acute [Recovered/Resolved]

NARRATIVE: CASE EVENT DATE: 20190308
